FAERS Safety Report 9413822 (Version 1)
Quarter: 2013Q3

REPORT INFORMATION
  Report Type: Spontaneous
  Country: DK (occurrence: DK)
  Receive Date: 20130723
  Receipt Date: 20130723
  Transmission Date: 20140515
  Serious: Yes (Hospitalization)
  Sender: FDA-Public Use
  Company Number: DK-AMGEN-DNKSP2013050560

PATIENT
  Age: 72 Year
  Sex: 0
  Weight: 100 kg

DRUGS (7)
  1. PROLIA [Suspect]
     Indication: OSTEOPOROSIS
     Dosage: 60 MG, Q6MO
     Route: 058
     Dates: start: 20110203, end: 20110905
  2. PREDNISOLON                        /00016201/ [Concomitant]
     Indication: ADVERSE DRUG REACTION
  3. SPIRIVA [Concomitant]
  4. NORVASC [Concomitant]
  5. OMEPRAZOL                          /00661201/ [Concomitant]
  6. LOSARTAN [Concomitant]
  7. PANODIL [Concomitant]

REACTIONS (2)
  - Wound [Recovering/Resolving]
  - Urticaria [Recovering/Resolving]
